FAERS Safety Report 20445254 (Version 2)
Quarter: 2022Q1

REPORT INFORMATION
  Report Type: Other
  Country: US (occurrence: US)
  Receive Date: 20220208
  Receipt Date: 20220221
  Transmission Date: 20220424
  Serious: No
  Sender: FDA-Public Use
  Company Number: US-NEUROCRINE BIOSCIENCES INC.-2022NBI00608

PATIENT

DRUGS (3)
  1. INGREZZA [Suspect]
     Active Substance: VALBENAZINE
     Indication: Tardive dyskinesia
     Dosage: 60 MILLIGRAM, QD
     Route: 048
     Dates: start: 20210827, end: 20220204
  2. INGREZZA [Suspect]
     Active Substance: VALBENAZINE
     Indication: Parkinsonism
     Dosage: 80 MILLIGRAM, QD
     Route: 048
     Dates: start: 20180412, end: 20180813
  3. INGREZZA [Suspect]
     Active Substance: VALBENAZINE
     Dosage: 40 MILLIGRAM, QD
     Route: 048
     Dates: start: 20171024, end: 20180411

REACTIONS (10)
  - Urinary tract infection [Unknown]
  - Diarrhoea [Unknown]
  - Dizziness [Unknown]
  - Vomiting [Unknown]
  - Tremor [Unknown]
  - Fall [Recovered/Resolved]
  - Dry mouth [Unknown]
  - Constipation [Unknown]
  - Therapeutic product effect decreased [Unknown]
  - Off label use [Unknown]

NARRATIVE: CASE EVENT DATE: 20181024
